FAERS Safety Report 4837590-0 (Version None)
Quarter: 2005Q4

REPORT INFORMATION
  Report Type: 
  Country: None (occurrence: None)
  Receive Date: 20051122
  Receipt Date: 20051108
  Transmission Date: 20060501
  Serious: Yes (Death)
  Sender: FDA-Public Use
  Company Number: 219369

PATIENT
  Age: 74 Year
  Sex: Male

DRUGS (9)
  1. MABTHERA (RITUXIMAB) CONC FOR SOLUTION FOR INFUSION [Suspect]
     Indication: B-CELL LYMPHOMA
     Dosage: 375 MG/M2, INTRAVENOUS
     Route: 042
     Dates: start: 20050914
  2. CYCLOPHOSPHAMIDE [Concomitant]
  3. VINCRISTINE [Concomitant]
  4. DOXORUBICIN HYDROCHLORIDE [Concomitant]
  5. PREDNISONE [Concomitant]
  6. DOMPERIDONE (DOMPERIDONE) [Concomitant]
  7. ACETAMINOPHEN [Concomitant]
  8. CHLORPHENIRAMINE MALEATE [Concomitant]
  9. DIGOXIN [Concomitant]

REACTIONS (1)
  - ERYTHEMA MULTIFORME [None]
